FAERS Safety Report 4565864-X (Version None)
Quarter: 2005Q1

REPORT INFORMATION
  Report Type: 
  Country: None (occurrence: None)
  Receive Date: 20050131
  Receipt Date: 20050118
  Transmission Date: 20050727
  Serious: Yes (Death, Hospitalization)
  Sender: FDA-Public Use
  Company Number: US-AMGEN-US108184

PATIENT
  Sex: Male

DRUGS (5)
  1. ENBREL [Suspect]
     Indication: PSORIATIC ARTHROPATHY
     Route: 058
     Dates: start: 20021214
  2. HUMIRA [Concomitant]
     Dates: start: 20040701, end: 20040901
  3. PREDNISONE [Concomitant]
     Route: 048
  4. SALSALATE [Concomitant]
     Route: 048
  5. VICODIN [Concomitant]
     Route: 048

REACTIONS (6)
  - DIALYSIS [None]
  - DISSEMINATED INTRAVASCULAR COAGULATION [None]
  - PYREXIA [None]
  - RENAL FAILURE [None]
  - RESPIRATORY DISORDER [None]
  - SEPTIC SHOCK [None]
